FAERS Safety Report 23591704 (Version 1)
Quarter: 2024Q1

REPORT INFORMATION
  Report Type: Spontaneous
  Country: US (occurrence: US)
  Receive Date: 20240304
  Receipt Date: 20240304
  Transmission Date: 20240410
  Serious: Yes (Hospitalization)
  Sender: FDA-Public Use
  Company Number: US-BAYER-2024A032247

PATIENT
  Age: 72 Year
  Sex: Female

DRUGS (1)
  1. MIRALAX [Suspect]
     Active Substance: POLYETHYLENE GLYCOL 3350
     Indication: Colonoscopy
     Dosage: 32 OZ, BID
     Route: 048
     Dates: start: 20240226

REACTIONS (2)
  - Blood pressure increased [None]
  - Off label use [None]

NARRATIVE: CASE EVENT DATE: 20240101
